FAERS Safety Report 9112903 (Version 1)
Quarter: 2013Q1

REPORT INFORMATION
  Report Type: Spontaneous
  Country: US (occurrence: US)
  Receive Date: 20130211
  Receipt Date: 20130211
  Transmission Date: 20140127
  Serious: Yes (Other)
  Sender: FDA-Public Use
  Company Number: US-ASTRAZENECA-2013SE07972

PATIENT
  Age: 62 Year
  Sex: Male
  Weight: 63.5 kg

DRUGS (5)
  1. SYMBICORT [Suspect]
     Indication: ASTHMA
     Dosage: 160MCG 2 PUFFS BID
     Route: 055
     Dates: start: 201206
  2. QVAAR [Concomitant]
     Indication: ASTHMA
     Dosage: TWO PUFFS DAILY
     Route: 055
     Dates: start: 201206
  3. VITAMIN C [Concomitant]
     Indication: SUPPLEMENTATION THERAPY
     Route: 048
     Dates: start: 1983
  4. ONE DAY MULTI-VITAMIN [Concomitant]
     Indication: SUPPLEMENTATION THERAPY
     Route: 048
     Dates: start: 1983
  5. RESCUE INHALER [Concomitant]
     Indication: ASTHMA
     Dosage: AS REQUIRED
     Route: 055

REACTIONS (4)
  - Muscle rupture [Unknown]
  - Muscular weakness [Unknown]
  - Dyspnoea [Unknown]
  - Muscle spasms [Unknown]
